FAERS Safety Report 8903178 (Version 1)
Quarter: 2012Q4

REPORT INFORMATION
  Report Type: 
  Country: ES (occurrence: ES)
  Receive Date: 20121113
  Receipt Date: 20121113
  Transmission Date: 20130627
  Serious: Yes (Other)
  Sender: FDA-Public Use
  Company Number: ES-SANOFI-AVENTIS-2012SA080648

PATIENT
  Age: 75 Year
  Sex: Female

DRUGS (5)
  1. MULTAQ [Suspect]
     Indication: ARRHYTHMIA
     Route: 048
     Dates: start: 20120622, end: 20120625
  2. SINTROM [Concomitant]
     Indication: ATRIAL FIBRILLATION
     Route: 048
     Dates: start: 20110520
  3. ORFIDAL [Concomitant]
     Indication: SLEEP DISORDER NOS
     Route: 048
     Dates: start: 20021104
  4. LACTULOSE [Concomitant]
     Indication: CONSTIPATION
     Route: 048
     Dates: start: 20120502
  5. ESPIRONOLACTONA [Concomitant]
     Indication: UNCOMPLICATED HYPERTENSION
     Route: 048
     Dates: start: 20120612

REACTIONS (2)
  - Tachycardia [Unknown]
  - Dizziness [Unknown]
